FAERS Safety Report 6458960-3 (Version None)
Quarter: 2009Q4

REPORT INFORMATION
  Report Type: 
  Country: None (occurrence: None)
  Receive Date: 20091127
  Receipt Date: 20091116
  Transmission Date: 20100525
  Serious: Yes (Death, Other)
  Sender: FDA-Public Use
  Company Number: US-ELI_LILLY_AND_COMPANY-US200911004827

PATIENT
  Age: 51 Year
  Sex: Male
  Weight: 65.76 kg

DRUGS (1)
  1. ZYPREXA [Suspect]
     Indication: SCHIZOPHRENIA, PARANOID TYPE
     Dosage: 30 MG, UNK

REACTIONS (5)
  - DEATH [None]
  - DRUG LEVEL [None]
  - MYOCARDIAL FIBROSIS [None]
  - OVERDOSE [None]
  - PSYCHIATRIC DECOMPENSATION [None]
